FAERS Safety Report 20445638 (Version 1)
Quarter: 2022Q1

REPORT INFORMATION
  Report Type: Spontaneous
  Country: US (occurrence: US)
  Receive Date: 20220208
  Receipt Date: 20220208
  Transmission Date: 20220424
  Serious: No
  Sender: FDA-Public Use
  Company Number: US-SA-SAC20220203000982

PATIENT
  Age: 54 Year
  Sex: Male

DRUGS (8)
  1. DUPIXENT [Suspect]
     Active Substance: DUPILUMAB
     Dosage: 300 MG, QOW
     Route: 058
     Dates: start: 202201
  2. MUCINEX [Concomitant]
     Active Substance: GUAIFENESIN
     Indication: Sinusitis
  3. MUCINEX [Concomitant]
     Active Substance: GUAIFENESIN
     Indication: Ear pain
  4. MUCINEX [Concomitant]
     Active Substance: GUAIFENESIN
     Indication: Ear discomfort
  5. OMEGA-3 FATTY ACIDS [Concomitant]
     Active Substance: OMEGA-3 FATTY ACIDS
  6. COENZYME Q10 [Concomitant]
     Active Substance: DIETARY SUPPLEMENT\UBIDECARENONE
  7. EPINEPHRINE [Concomitant]
     Active Substance: EPINEPHRINE
  8. TIZANIDINE HYDROCHLORIDE [Concomitant]
     Active Substance: TIZANIDINE HYDROCHLORIDE

REACTIONS (6)
  - Injection site mass [Recovered/Resolved]
  - Sinusitis [Unknown]
  - Ear pain [Unknown]
  - Ear discomfort [Unknown]
  - Therapy interrupted [Unknown]
  - Product use in unapproved indication [Unknown]
